FAERS Safety Report 9490653 (Version 1)
Quarter: 2013Q3

REPORT INFORMATION
  Report Type: Spontaneous
  Country: US (occurrence: None)
  Receive Date: 20130828
  Receipt Date: 20130828
  Transmission Date: 20140515
  Serious: Yes (Other)
  Sender: FDA-Public Use
  Company Number: None

PATIENT
  Age: 50 Year
  Sex: Female
  Weight: 137 kg

DRUGS (6)
  1. MULTIHANCE [Suspect]
     Indication: SCAN WITH CONTRAST
     Dosage: 0.1 MMOL/KG = 25 KG -- INTRAVENOUS
     Route: 042
     Dates: start: 20130712
  2. BUTALBITAL-ASA-CAFFEINE [Concomitant]
  3. CHOLESTYRAMINE [Concomitant]
  4. MESALAMINE [Concomitant]
  5. TRAMADOL [Concomitant]
  6. AMBIEN CR [Concomitant]

REACTIONS (2)
  - Urticaria [None]
  - Rash [None]
